FAERS Safety Report 20161429 (Version 2)
Quarter: 2022Q1

REPORT INFORMATION
  Report Type: Spontaneous
  Country: AR (occurrence: None)
  Receive Date: 20211208
  Receipt Date: 20220210
  Transmission Date: 20220423
  Serious: Yes (Death, Hospitalization)
  Sender: FDA-Public Use
  Company Number: AR-Merck Healthcare KGaA-9283982

PATIENT
  Age: 74 Year
  Sex: Male

DRUGS (1)
  1. BAVENCIO [Suspect]
     Active Substance: AVELUMAB
     Indication: Neuroendocrine carcinoma of the skin
     Route: 042
     Dates: start: 20210908, end: 20211020

REACTIONS (2)
  - Pneumonia [Fatal]
  - Disease progression [Unknown]

NARRATIVE: CASE EVENT DATE: 20211119
